FAERS Safety Report 12588193 (Version 1)
Quarter: 2016Q3

REPORT INFORMATION
  Report Type: Spontaneous
  Country: US (occurrence: US)
  Receive Date: 20160725
  Receipt Date: 20160725
  Transmission Date: 20161109
  Serious: Yes (Other)
  Sender: FDA-Public Use
  Company Number: US-BAYER-2016-143948

PATIENT
  Age: 35 Year
  Sex: Female
  Weight: 200 kg

DRUGS (1)
  1. MIRENA [Suspect]
     Active Substance: LEVONORGESTREL
     Indication: CONTRACEPTIVE IMPLANT
     Dosage: 20 MCG/24HR, CONT
     Route: 015
     Dates: start: 20140619, end: 20160719

REACTIONS (2)
  - Device breakage [Unknown]
  - Device difficult to use [None]

NARRATIVE: CASE EVENT DATE: 20160719
